FAERS Safety Report 4698771-2 (Version None)
Quarter: 2005Q2

REPORT INFORMATION
  Report Type: 
  Country: None (occurrence: None)
  Receive Date: 20050621
  Receipt Date: 20041207
  Transmission Date: 20051028
  Serious: Yes (Life-Threatening, Hospitalization)
  Sender: FDA-Public Use
  Company Number: PHEH2004US13045

PATIENT
  Age: 60 Year
  Sex: Female

DRUGS (3)
  1. EXELON [Suspect]
     Dosage: 6 MG, BID, ORAL
     Route: 048
  2. DIOVAN [Concomitant]
  3. THYROID TAB [Concomitant]

REACTIONS (1)
  - CARDIAC ARREST [None]
